FAERS Safety Report 20041774 (Version 1)
Quarter: 2021Q4

REPORT INFORMATION
  Report Type: Spontaneous
  Country: FR (occurrence: FR)
  Receive Date: 20211108
  Receipt Date: 20211108
  Transmission Date: 20220303
  Serious: Yes (Hospitalization)
  Sender: FDA-Public Use
  Company Number: FR-AFSSAPS-PV20213005

PATIENT
  Age: 14 Year
  Sex: Female
  Weight: 77 kg

DRUGS (3)
  1. FLUOXETINE [Suspect]
     Active Substance: FLUOXETINE HYDROCHLORIDE
     Indication: Poisoning deliberate
     Dosage: 560 MILLIGRAM, IN TOTAL
     Route: 048
     Dates: start: 20210922, end: 20210922
  2. RISPERIDONE [Suspect]
     Active Substance: RISPERIDONE
     Indication: Poisoning deliberate
     Dosage: 28 MILLIGRAM, IN TOTAL
     Route: 048
     Dates: start: 20210922, end: 20210922
  3. CHLORPROMAZINE HYDROCHLORIDE [Suspect]
     Active Substance: CHLORPROMAZINE HYDROCHLORIDE
     Indication: Poisoning deliberate
     Dosage: 1250 MILLIGRAM, IN TOTAL
     Route: 048
     Dates: start: 20210922, end: 20210922

REACTIONS (3)
  - Coma [Recovered/Resolved]
  - Poisoning deliberate [Recovered/Resolved]
  - Electrocardiogram QT prolonged [Recovered/Resolved]

NARRATIVE: CASE EVENT DATE: 20210922
